FAERS Safety Report 19771827 (Version 9)
Quarter: 2025Q3

REPORT INFORMATION
  Report Type: Spontaneous
  Country: EU (occurrence: EU)
  Receive Date: 20210831
  Receipt Date: 20250710
  Transmission Date: 20251021
  Serious: Yes (Hospitalization, Other)
  Sender: MYLAN
  Company Number: EU-002147023-NVSC2020DE318321

PATIENT
  Age: 65 Year
  Sex: Female
  Weight: 107 kg

DRUGS (116)
  1. VALSARTAN [Suspect]
     Active Substance: VALSARTAN
     Indication: Hypertension
     Dosage: (160MG IN MORNING AND 160 MG IN EVENING)START DATE:19-DEC-2013
     Route: 065
  2. VALSARTAN [Suspect]
     Active Substance: VALSARTAN
     Dosage: (160MG IN MORNING AND 160 MG IN EVENING)START DATE:19-DEC-2013
     Route: 065
  3. VALSARTAN [Suspect]
     Active Substance: VALSARTAN
     Dosage: (160MG IN MORNING AND 160 MG IN EVENING)START DATE:19-DEC-2013
  4. VALSARTAN [Suspect]
     Active Substance: VALSARTAN
     Dosage: (160MG IN MORNING AND 160 MG IN EVENING)START DATE:19-DEC-2013
  5. VALSARTAN [Suspect]
     Active Substance: VALSARTAN
     Dosage: 1 DF, BID (MORNING AND EVENING)
  6. VALSARTAN [Suspect]
     Active Substance: VALSARTAN
     Dosage: 1 DF, BID (MORNING AND EVENING)
  7. VALSARTAN [Suspect]
     Active Substance: VALSARTAN
     Dosage: 1 DF, BID (MORNING AND EVENING)
     Route: 065
  8. VALSARTAN [Suspect]
     Active Substance: VALSARTAN
     Dosage: 1 DF, BID (MORNING AND EVENING)
     Route: 065
  9. VALSARTAN [Suspect]
     Active Substance: VALSARTAN
     Dosage: 240 MILLIGRAM, QD
     Route: 065
  10. VALSARTAN [Suspect]
     Active Substance: VALSARTAN
     Dosage: 240 MILLIGRAM, QD
     Route: 065
  11. VALSARTAN [Suspect]
     Active Substance: VALSARTAN
     Dosage: 240 MILLIGRAM, QD
  12. VALSARTAN [Suspect]
     Active Substance: VALSARTAN
     Dosage: 240 MILLIGRAM, QD
  13. VALSARTAN [Suspect]
     Active Substance: VALSARTAN
     Dosage: 1 DOSAGE FORM, QD
     Route: 065
  14. VALSARTAN [Suspect]
     Active Substance: VALSARTAN
     Dosage: 1 DOSAGE FORM, QD
     Route: 065
  15. VALSARTAN [Suspect]
     Active Substance: VALSARTAN
     Dosage: 1 DOSAGE FORM, QD
  16. VALSARTAN [Suspect]
     Active Substance: VALSARTAN
     Dosage: 1 DOSAGE FORM, QD
  17. VALSARTAN [Suspect]
     Active Substance: VALSARTAN
  18. VALSARTAN [Suspect]
     Active Substance: VALSARTAN
  19. VALSARTAN [Suspect]
     Active Substance: VALSARTAN
     Route: 065
  20. VALSARTAN [Suspect]
     Active Substance: VALSARTAN
     Route: 065
  21. VERAPAMIL [Suspect]
     Active Substance: VERAPAMIL HYDROCHLORIDE
     Indication: Product used for unknown indication
  22. VERAPAMIL [Suspect]
     Active Substance: VERAPAMIL HYDROCHLORIDE
     Route: 065
  23. VERAPAMIL [Suspect]
     Active Substance: VERAPAMIL HYDROCHLORIDE
     Route: 065
  24. VERAPAMIL [Suspect]
     Active Substance: VERAPAMIL HYDROCHLORIDE
  25. VERAPAMIL [Suspect]
     Active Substance: VERAPAMIL HYDROCHLORIDE
     Dosage: BID, 0.5X 240 MG
     Route: 065
  26. VERAPAMIL [Suspect]
     Active Substance: VERAPAMIL HYDROCHLORIDE
     Dosage: BID, 0.5X 240 MG
     Route: 065
  27. VERAPAMIL [Suspect]
     Active Substance: VERAPAMIL HYDROCHLORIDE
     Dosage: BID, 0.5X 240 MG
  28. VERAPAMIL [Suspect]
     Active Substance: VERAPAMIL HYDROCHLORIDE
     Dosage: BID, 0.5X 240 MG
  29. VERAPAMIL [Suspect]
     Active Substance: VERAPAMIL HYDROCHLORIDE
  30. VERAPAMIL [Suspect]
     Active Substance: VERAPAMIL HYDROCHLORIDE
     Route: 065
  31. VERAPAMIL [Suspect]
     Active Substance: VERAPAMIL HYDROCHLORIDE
  32. VERAPAMIL [Suspect]
     Active Substance: VERAPAMIL HYDROCHLORIDE
     Route: 065
  33. VALSARTAN [Suspect]
     Active Substance: VALSARTAN
     Indication: Hypertension
     Route: 065
  34. VALSARTAN [Suspect]
     Active Substance: VALSARTAN
  35. VALSARTAN [Suspect]
     Active Substance: VALSARTAN
  36. VALSARTAN [Suspect]
     Active Substance: VALSARTAN
     Route: 065
  37. VALSARTAN [Suspect]
     Active Substance: VALSARTAN
  38. VALSARTAN [Suspect]
     Active Substance: VALSARTAN
  39. VALSARTAN [Suspect]
     Active Substance: VALSARTAN
     Route: 065
  40. VALSARTAN [Suspect]
     Active Substance: VALSARTAN
     Route: 065
  41. VALSARTAN [Suspect]
     Active Substance: VALSARTAN
     Dosage: 240 MG, QD
  42. VALSARTAN [Suspect]
     Active Substance: VALSARTAN
     Dosage: 240 MG, QD
     Route: 065
  43. VALSARTAN [Suspect]
     Active Substance: VALSARTAN
     Dosage: 240 MG, QD
  44. VALSARTAN [Suspect]
     Active Substance: VALSARTAN
     Dosage: 240 MG, QD
     Route: 065
  45. VALSARTAN [Suspect]
     Active Substance: VALSARTAN
     Dosage: 320 MG, QD (160MG IN THE MORNING AND 160 MG IN THE EVENING)
     Route: 065
     Dates: start: 20131219
  46. VALSARTAN [Suspect]
     Active Substance: VALSARTAN
     Dosage: 320 MG, QD (160MG IN THE MORNING AND 160 MG IN THE EVENING)
     Dates: start: 20131219
  47. VALSARTAN [Suspect]
     Active Substance: VALSARTAN
     Dosage: 320 MG, QD (160MG IN THE MORNING AND 160 MG IN THE EVENING)
     Dates: start: 20131219
  48. VALSARTAN [Suspect]
     Active Substance: VALSARTAN
     Dosage: 320 MG, QD (160MG IN THE MORNING AND 160 MG IN THE EVENING)
     Route: 065
     Dates: start: 20131219
  49. VALSARTAN [Suspect]
     Active Substance: VALSARTAN
     Dosage: 1 DOSAGE FORM, BID (MORNING AND EVENING)
     Route: 065
  50. VALSARTAN [Suspect]
     Active Substance: VALSARTAN
     Dosage: 1 DOSAGE FORM, BID (MORNING AND EVENING)
  51. VALSARTAN [Suspect]
     Active Substance: VALSARTAN
     Dosage: 1 DOSAGE FORM, BID (MORNING AND EVENING)
  52. VALSARTAN [Suspect]
     Active Substance: VALSARTAN
     Dosage: 1 DOSAGE FORM, BID (MORNING AND EVENING)
     Route: 065
  53. VALSARTAN [Suspect]
     Active Substance: VALSARTAN
     Dosage: 1 DOSAGE FORM, QD
     Route: 065
  54. VALSARTAN [Suspect]
     Active Substance: VALSARTAN
     Dosage: 1 DOSAGE FORM, QD
  55. VALSARTAN [Suspect]
     Active Substance: VALSARTAN
     Dosage: 1 DOSAGE FORM, QD
  56. VALSARTAN [Suspect]
     Active Substance: VALSARTAN
     Dosage: 1 DOSAGE FORM, QD
     Route: 065
  57. VALSARTAN [Suspect]
     Active Substance: VALSARTAN
  58. VALSARTAN [Suspect]
     Active Substance: VALSARTAN
  59. VALSARTAN [Suspect]
     Active Substance: VALSARTAN
     Route: 065
  60. VALSARTAN [Suspect]
     Active Substance: VALSARTAN
     Route: 065
  61. VALSARTAN [Suspect]
     Active Substance: VALSARTAN
  62. VALSARTAN [Suspect]
     Active Substance: VALSARTAN
  63. VALSARTAN [Suspect]
     Active Substance: VALSARTAN
     Route: 065
  64. VALSARTAN [Suspect]
     Active Substance: VALSARTAN
     Route: 065
  65. PROVAS [Suspect]
     Active Substance: VALSARTAN
     Indication: Hypertension
     Route: 065
  66. PROVAS [Suspect]
     Active Substance: VALSARTAN
  67. PROVAS [Suspect]
     Active Substance: VALSARTAN
  68. PROVAS [Suspect]
     Active Substance: VALSARTAN
     Route: 065
  69. PROVAS [Suspect]
     Active Substance: VALSARTAN
     Dosage: 1 DF, BID
     Route: 065
     Dates: start: 2003
  70. PROVAS [Suspect]
     Active Substance: VALSARTAN
     Dosage: 1 DF, BID
     Dates: start: 2003
  71. PROVAS [Suspect]
     Active Substance: VALSARTAN
     Dosage: 1 DF, BID
     Dates: start: 2003
  72. PROVAS [Suspect]
     Active Substance: VALSARTAN
     Dosage: 1 DF, BID
     Route: 065
     Dates: start: 2003
  73. XYLOCAINE [Concomitant]
     Active Substance: LIDOCAINE HYDROCHLORIDE
     Indication: Oesophagogastroscopy
  74. XYLOCAINE [Concomitant]
     Active Substance: LIDOCAINE HYDROCHLORIDE
  75. XYLOCAINE [Concomitant]
     Active Substance: LIDOCAINE HYDROCHLORIDE
     Route: 065
  76. XYLOCAINE [Concomitant]
     Active Substance: LIDOCAINE HYDROCHLORIDE
     Route: 065
  77. XYLOCAINE [Concomitant]
     Active Substance: LIDOCAINE HYDROCHLORIDE
  78. XYLOCAINE [Concomitant]
     Active Substance: LIDOCAINE HYDROCHLORIDE
  79. XYLOCAINE [Concomitant]
     Active Substance: LIDOCAINE HYDROCHLORIDE
     Route: 065
  80. XYLOCAINE [Concomitant]
     Active Substance: LIDOCAINE HYDROCHLORIDE
     Route: 065
  81. PROPOFOL [Concomitant]
     Active Substance: PROPOFOL
     Indication: Oesophagogastroscopy
  82. PROPOFOL [Concomitant]
     Active Substance: PROPOFOL
     Route: 042
  83. PROPOFOL [Concomitant]
     Active Substance: PROPOFOL
     Route: 042
  84. PROPOFOL [Concomitant]
     Active Substance: PROPOFOL
  85. Dormicum [Concomitant]
     Indication: Oesophagogastroscopy
  86. Dormicum [Concomitant]
  87. Dormicum [Concomitant]
     Route: 042
  88. Dormicum [Concomitant]
     Route: 042
  89. Dormicum [Concomitant]
  90. Dormicum [Concomitant]
  91. Dormicum [Concomitant]
     Route: 042
  92. Dormicum [Concomitant]
     Route: 042
  93. IBUPROFEN [Concomitant]
     Active Substance: IBUPROFEN
     Indication: Product used for unknown indication
  94. IBUPROFEN [Concomitant]
     Active Substance: IBUPROFEN
  95. IBUPROFEN [Concomitant]
     Active Substance: IBUPROFEN
     Route: 065
  96. IBUPROFEN [Concomitant]
     Active Substance: IBUPROFEN
     Route: 065
  97. IBUPROFEN [Concomitant]
     Active Substance: IBUPROFEN
  98. IBUPROFEN [Concomitant]
     Active Substance: IBUPROFEN
  99. IBUPROFEN [Concomitant]
     Active Substance: IBUPROFEN
     Route: 065
  100. IBUPROFEN [Concomitant]
     Active Substance: IBUPROFEN
     Route: 065
  101. AMLODIPINE [Concomitant]
     Active Substance: AMLODIPINE BESYLATE
     Indication: Product used for unknown indication
     Dosage: BID,1X 5 MG
  102. AMLODIPINE [Concomitant]
     Active Substance: AMLODIPINE BESYLATE
     Dosage: BID,1X 5 MG
  103. AMLODIPINE [Concomitant]
     Active Substance: AMLODIPINE BESYLATE
     Dosage: BID,1X 5 MG
     Route: 065
  104. AMLODIPINE [Concomitant]
     Active Substance: AMLODIPINE BESYLATE
     Dosage: BID,1X 5 MG
     Route: 065
  105. AMLODIPINE [Concomitant]
     Active Substance: AMLODIPINE BESYLATE
  106. AMLODIPINE [Concomitant]
     Active Substance: AMLODIPINE BESYLATE
  107. AMLODIPINE [Concomitant]
     Active Substance: AMLODIPINE BESYLATE
     Route: 065
  108. AMLODIPINE [Concomitant]
     Active Substance: AMLODIPINE BESYLATE
     Route: 065
  109. Xylocaine w/glucose [Concomitant]
     Indication: Oesophagogastroscopy
  110. Xylocaine w/glucose [Concomitant]
  111. Xylocaine w/glucose [Concomitant]
     Route: 065
  112. Xylocaine w/glucose [Concomitant]
     Route: 065
  113. Xylocaine w/glucose [Concomitant]
  114. Xylocaine w/glucose [Concomitant]
  115. Xylocaine w/glucose [Concomitant]
     Route: 065
  116. Xylocaine w/glucose [Concomitant]
     Route: 065

REACTIONS (32)
  - Complication associated with device [Recovered/Resolved]
  - Gastric mucosa erythema [Unknown]
  - Helicobacter gastritis [Unknown]
  - Abdominal discomfort [Unknown]
  - Osteochondrosis [Unknown]
  - Ill-defined disorder [Unknown]
  - Basal cell carcinoma [Unknown]
  - Lordosis [Unknown]
  - Spondylitis [Unknown]
  - Chills [Unknown]
  - Arthropathy [Unknown]
  - Microcytic anaemia [Unknown]
  - Emotional distress [Unknown]
  - Limb discomfort [Unknown]
  - Product contamination [Unknown]
  - Quality of life decreased [Unknown]
  - Renal cyst [Unknown]
  - Pain in extremity [Unknown]
  - Myalgia [Unknown]
  - Anxiety [Unknown]
  - Back pain [Unknown]
  - Vomiting [Unknown]
  - Pyrexia [Unknown]
  - Body fat disorder [Unknown]
  - Headache [Unknown]
  - Insomnia [Unknown]
  - Anaemia vitamin B12 deficiency [Unknown]
  - Diverticulum [Unknown]
  - Merycism [Unknown]
  - Iron deficiency [Unknown]
  - Hiatus hernia [Unknown]
  - Pain [Unknown]

NARRATIVE: CASE EVENT DATE: 20170919
